FAERS Safety Report 18880922 (Version 1)
Quarter: 2021Q1

REPORT INFORMATION
  Report Type: Spontaneous
  Country: ES (occurrence: ES)
  Receive Date: 20210212
  Receipt Date: 20210212
  Transmission Date: 20210420
  Serious: Yes (Hospitalization, Other)
  Sender: FDA-Public Use
  Company Number: ES-AUROBINDO-AUR-APL-2021-005170

PATIENT
  Age: 61 Year
  Sex: Male

DRUGS (1)
  1. BUPIVACAINE. [Suspect]
     Active Substance: BUPIVACAINE
     Indication: SPINAL ANAESTHESIA
     Dosage: 10 MILLIGRAM (0.5%)
     Route: 065

REACTIONS (13)
  - Blindness [Recovering/Resolving]
  - Pituitary tumour benign [Recovering/Resolving]
  - Agitation [Recovering/Resolving]
  - Musculoskeletal stiffness [Recovering/Resolving]
  - Heart rate decreased [Recovering/Resolving]
  - Confusional state [Recovering/Resolving]
  - Pyrexia [Recovering/Resolving]
  - Amaurosis [Recovering/Resolving]
  - Pituitary apoplexy [Recovering/Resolving]
  - Blood sodium decreased [Recovering/Resolving]
  - Hemianopia [Recovering/Resolving]
  - Blood pressure decreased [Recovering/Resolving]
  - Headache [Recovering/Resolving]
